FAERS Safety Report 15507871 (Version 1)
Quarter: 2018Q4

REPORT INFORMATION
  Report Type: Spontaneous
  Country: US (occurrence: US)
  Receive Date: 20181016
  Receipt Date: 20181016
  Transmission Date: 20190205
  Serious: No
  Sender: FDA-Public Use
  Company Number: US-SA-2018SA284877

PATIENT
  Age: 7 Year
  Sex: Female

DRUGS (2)
  1. ALLEGRA [Suspect]
     Active Substance: FEXOFENADINE HYDROCHLORIDE
     Dosage: 5 ML, UNK
     Route: 048
  2. ALLEGRA [Suspect]
     Active Substance: FEXOFENADINE HYDROCHLORIDE
     Indication: HYPERSENSITIVITY
     Dosage: CHILDREN^S 12 HOURS
     Route: 048

REACTIONS (4)
  - Swelling [Unknown]
  - Urticaria [Unknown]
  - Pyrexia [Unknown]
  - Drug ineffective [Unknown]
